FAERS Safety Report 9831430 (Version 1)
Quarter: 2014Q1

REPORT INFORMATION
  Report Type: Report from Study
  Country: JP (occurrence: JP)
  Receive Date: 20140121
  Receipt Date: 20140121
  Transmission Date: 20141002
  Serious: Yes (Death, Hospitalization)
  Sender: FDA-Public Use
  Company Number: JP-ROCHE-1334520

PATIENT
  Age: 78 Year
  Sex: Male

DRUGS (20)
  1. METHOXY POLYETHYLENE GLYCOL-EPOETIN BETA [Suspect]
     Indication: NEPHROGENIC ANAEMIA
     Route: 058
     Dates: start: 20121128, end: 20121128
  2. METHOXY POLYETHYLENE GLYCOL-EPOETIN BETA [Suspect]
     Indication: NEPHROGENIC ANAEMIA
     Route: 058
     Dates: start: 20130111, end: 20130111
  3. METHOXY POLYETHYLENE GLYCOL-EPOETIN BETA [Suspect]
     Indication: NEPHROGENIC ANAEMIA
     Route: 058
     Dates: start: 20130219, end: 20130515
  4. CASODEX [Concomitant]
     Route: 048
     Dates: end: 20130403
  5. URSO [Concomitant]
     Route: 048
     Dates: end: 20130221
  6. METHYCOBAL [Concomitant]
     Route: 048
     Dates: end: 20130209
  7. CYANOCOBALAMIN [Concomitant]
     Indication: PROPHYLAXIS
     Dosage: PROPER QUANTITY, DRUG REPORTED AS VITACOBAL
     Route: 047
     Dates: start: 20130318, end: 20130318
  8. DEXALTIN [Concomitant]
     Indication: PROPHYLAXIS
     Dosage: PROPER QUANTITY
     Route: 003
     Dates: start: 20130326, end: 20130326
  9. WARFARIN [Concomitant]
     Indication: PROPHYLAXIS
     Route: 048
     Dates: start: 20130327, end: 20130411
  10. GASTER D [Concomitant]
     Indication: PROPHYLAXIS
     Route: 048
     Dates: start: 20130327, end: 20130417
  11. SODIUM CHLORIDE [Concomitant]
     Indication: PROPHYLAXIS
     Route: 048
     Dates: start: 20130328, end: 20130404
  12. AMLODIN [Concomitant]
     Indication: PROPHYLAXIS
     Route: 048
     Dates: start: 20130328, end: 20130404
  13. HYPEN [Concomitant]
     Indication: PROPHYLAXIS
     Route: 048
     Dates: start: 20130404, end: 20130531
  14. ALEVIATIN [Concomitant]
     Indication: PROPHYLAXIS
     Route: 048
     Dates: start: 20130410, end: 20130416
  15. TAKEPRON [Concomitant]
     Indication: PROPHYLAXIS
     Route: 048
     Dates: start: 20130419, end: 20130531
  16. PROPETO [Concomitant]
     Indication: PROPHYLAXIS
     Route: 003
     Dates: start: 20130501, end: 20130501
  17. HIRUDOID LOTION [Concomitant]
     Indication: PROPHYLAXIS
     Dosage: PROPER QUANTITY
     Route: 003
     Dates: start: 20130503, end: 20130503
  18. AZUNOL [Concomitant]
     Indication: PROPHYLAXIS
     Dosage: PROPER QUANTITY
     Route: 003
     Dates: start: 20130507, end: 20130507
  19. ENTERONON-R [Concomitant]
     Indication: PROPHYLAXIS
     Route: 048
     Dates: start: 20130508, end: 20130531
  20. ZOLADEX LA [Concomitant]
     Route: 058
     Dates: end: 20130403

REACTIONS (3)
  - Death [Fatal]
  - Cerebral artery embolism [Recovering/Resolving]
  - Hypertension [Unknown]
